FAERS Safety Report 8229337-5 (Version None)
Quarter: 2012Q1

REPORT INFORMATION
  Report Type: 
  Country: None (occurrence: None)
  Receive Date: 20120322
  Receipt Date: 20120319
  Transmission Date: 20120608
  Serious: Yes (Other)
  Sender: FDA-Public Use
  Company Number: SK-AMGEN-SVKSP2012017613

PATIENT
  Sex: Female

DRUGS (1)
  1. PROLIA [Suspect]
     Indication: OSTEOPOROSIS

REACTIONS (5)
  - HAEMATURIA [None]
  - PAIN IN EXTREMITY [None]
  - INJECTION SITE SWELLING [None]
  - BACK PAIN [None]
  - ANKLE FRACTURE [None]
